FAERS Safety Report 5919689-0 (Version None)
Quarter: 2008Q4

REPORT INFORMATION
  Report Type: 
  Country: None (occurrence: None)
  Receive Date: 20081015
  Receipt Date: 20081007
  Transmission Date: 20090506
  Serious: Yes (Other)
  Sender: FDA-Public Use
  Company Number: GB-JNJCH-2008020623

PATIENT
  Sex: Male

DRUGS (6)
  1. NICORETTE [Suspect]
     Indication: CORONARY ARTERY BYPASS
     Route: 062
     Dates: start: 20080701, end: 20080722
  2. ACETAMINOPHEN W/ CODEINE [Concomitant]
     Indication: ARTHRALGIA
     Dosage: TEXT:30/500 UNSPECIFIED
     Route: 065
  3. ATENOLOL [Concomitant]
     Indication: ANGINA PECTORIS
     Dosage: TEXT:50 MG UNSPECIFIED
     Route: 048
     Dates: start: 20060601
  4. SIMVASTATIN [Concomitant]
     Indication: ANGINA PECTORIS
     Dosage: TEXT:40 MG UNSPECIFIED
     Route: 048
     Dates: start: 20060601
  5. AMLODIPINE [Concomitant]
     Indication: ANGINA PECTORIS
     Dosage: TEXT:5 MG UNSPECIFIED
     Route: 048
     Dates: start: 20060601
  6. ACETYLSALICYLIC ACID SRT [Concomitant]
     Indication: ARTHRALGIA
     Dosage: TEXT:75 MG  UNSPECIFIED
     Route: 048

REACTIONS (12)
  - ANXIETY [None]
  - ASTHENIA [None]
  - CONSTIPATION [None]
  - DECREASED APPETITE [None]
  - DEPRESSION [None]
  - DIARRHOEA [None]
  - DISTURBANCE IN ATTENTION [None]
  - FATIGUE [None]
  - INSOMNIA [None]
  - OVERDOSE [None]
  - RESTLESSNESS [None]
  - SELF ESTEEM DECREASED [None]
